FAERS Safety Report 12222135 (Version 4)
Quarter: 2017Q2

REPORT INFORMATION
  Report Type: Spontaneous
  Country: US (occurrence: US)
  Receive Date: 20160330
  Receipt Date: 20170405
  Transmission Date: 20170830
  Serious: Yes (Hospitalization, Other)
  Sender: FDA-Public Use
  Company Number: US-JNJFOC-20160325174

PATIENT
  Age: 36 Year
  Sex: Female

DRUGS (1)
  1. INVOKANA [Suspect]
     Active Substance: CANAGLIFLOZIN
     Indication: TYPE 1 DIABETES MELLITUS
     Route: 048
     Dates: start: 201403, end: 201410

REACTIONS (6)
  - Diabetic ketoacidosis [Recovered/Resolved]
  - Product use in unapproved indication [Unknown]
  - Gastroenteritis viral [Unknown]
  - Renal injury [Unknown]
  - Off label use [Unknown]
  - Fungal infection [Unknown]

NARRATIVE: CASE EVENT DATE: 201405
